FAERS Safety Report 23289509 (Version 1)
Quarter: 2023Q4

REPORT INFORMATION
  Report Type: Spontaneous
  Country: CN (occurrence: CN)
  Receive Date: 20231212
  Receipt Date: 20231212
  Transmission Date: 20240110
  Serious: Yes (Hospitalization, Other)
  Sender: FDA-Public Use
  Company Number: CN-009507513-2312CHN003215

PATIENT
  Age: 57 Year
  Sex: Male
  Weight: 57 kg

DRUGS (3)
  1. PEMBROLIZUMAB [Suspect]
     Active Substance: PEMBROLIZUMAB
     Indication: Lung squamous cell carcinoma stage IV
     Dosage: 2 MILLIGRAM/KILOGRAM , DAY 1 ON 3-4 WEEKS AS ONE CYCLE, TOTAL 5 CYCLES
     Route: 042
     Dates: start: 20200909, end: 20210311
  2. PEMBROLIZUMAB [Suspect]
     Active Substance: PEMBROLIZUMAB
     Dosage: 2 MILLIGRAM/KILOGRAM, 2 MILLIGRAM/KILOGRAM, DAY 1 ON 3-4 WEEKS AS ONE CYCLE, CYCLICAL
     Route: 042
     Dates: start: 20210403, end: 20210403
  3. PACLITAXEL [Suspect]
     Active Substance: PACLITAXEL
     Indication: Lung squamous cell carcinoma stage IV
     Dosage: 400 MILLIGRAM, DAY 1,  3-4 WEEKS AS ONE CYCLE, CYCLICAL (TOTAL 5 CYCLES)
     Route: 042
     Dates: start: 20200909, end: 20210311

REACTIONS (3)
  - Immune-mediated enterocolitis [Recovered/Resolved]
  - Colitis ulcerative [Recovered/Resolved]
  - Product use in unapproved indication [Unknown]

NARRATIVE: CASE EVENT DATE: 20200909
